FAERS Safety Report 5218767-1 (Version None)
Quarter: 2007Q1

REPORT INFORMATION
  Report Type: 
  Country: None (occurrence: None)
  Receive Date: 20070123
  Receipt Date: 20070108
  Transmission Date: 20070707
  Serious: Yes (Death)
  Sender: FDA-Public Use
  Company Number: HQWYE120211JAN07

PATIENT
  Sex: Female

DRUGS (2)
  1. EFFEXOR XR [Suspect]
     Dosage: ORAL
     Route: 048
  2. ALCOHOL (ETHANOL) [Suspect]

REACTIONS (2)
  - ALCOHOL USE [None]
  - CARDIAC DISORDER [None]
